FAERS Safety Report 17172870 (Version 4)
Quarter: 2021Q2

REPORT INFORMATION
  Report Type: Spontaneous
  Country: US (occurrence: US)
  Receive Date: 20191219
  Receipt Date: 20210430
  Transmission Date: 20210716
  Serious: Yes (Hospitalization)
  Sender: FDA-Public Use
  Company Number: US-SA-2019SA351982

PATIENT
  Age: 43 Year
  Sex: Male

DRUGS (2)
  1. DUPIXENT [Suspect]
     Active Substance: DUPILUMAB
     Indication: DERMATITIS ALLERGIC
  2. DUPIXENT [Suspect]
     Active Substance: DUPILUMAB
     Indication: ECZEMA
     Dosage: 300 MG, QOW
     Route: 058
     Dates: start: 20191029

REACTIONS (6)
  - Product use in unapproved indication [Unknown]
  - Peripheral vein occlusion [Recovering/Resolving]
  - Psoriasis [Unknown]
  - Hospitalisation [Recovered/Resolved]
  - Angioplasty [Unknown]
  - Pain [Unknown]

NARRATIVE: CASE EVENT DATE: 20191029
